FAERS Safety Report 8452182-2 (Version None)
Quarter: 2012Q2

REPORT INFORMATION
  Report Type: 
  Country: None (occurrence: None)
  Receive Date: 20120620
  Receipt Date: 20120613
  Transmission Date: 20120825
  Serious: Yes (Other)
  Sender: FDA-Public Use
  Company Number: FR-GLAXOSMITHKLINE-B0807986A

PATIENT
  Age: 25 Year
  Sex: Female

DRUGS (1)
  1. LAMICTAL [Suspect]
     Indication: BIPOLAR DISORDER
     Route: 048
     Dates: start: 20111201, end: 20120501

REACTIONS (7)
  - SUICIDAL IDEATION [None]
  - FATIGUE [None]
  - WEIGHT INCREASED [None]
  - OCULAR ICTERUS [None]
  - INSOMNIA [None]
  - OEDEMA PERIPHERAL [None]
  - DERMATITIS ACNEIFORM [None]
